FAERS Safety Report 11819994 (Version 6)
Quarter: 2021Q2

REPORT INFORMATION
  Report Type: Report from Study
  Country: BE (occurrence: BE)
  Receive Date: 20151210
  Receipt Date: 20210430
  Transmission Date: 20210716
  Serious: Yes (Life-Threatening, Hospitalization)
  Sender: FDA-Public Use
  Company Number: BE-PFIZER INC-2015413114

PATIENT
  Age: 49 Year
  Sex: Male
  Weight: 78.8 kg

DRUGS (6)
  1. MEDROL [Concomitant]
     Active Substance: METHYLPREDNISOLONE
     Indication: DECREASED APPETITE
  2. OMEPRAZOLE. [Concomitant]
     Active Substance: OMEPRAZOLE
     Indication: PROPHYLAXIS
     Dosage: UNK
     Dates: start: 2015
  3. SUTENT [Suspect]
     Active Substance: SUNITINIB MALATE
     Indication: METASTATIC RENAL CELL CARCINOMA
     Dosage: 50 MG, CYCLIC (1X/DAY, DAY1 TILL 28, DAY 1=D43)
     Route: 048
     Dates: start: 201510, end: 201511
  4. DAFALGAN [Concomitant]
     Active Substance: ACETAMINOPHEN
     Indication: PAIN
     Dosage: UNK
     Dates: start: 2015
  5. SUTENT [Suspect]
     Active Substance: SUNITINIB MALATE
     Dosage: 37.5 MG, CYCLIC (1X/DAY, DAY1 TILL 28, DAY 1=D43)
     Route: 048
     Dates: start: 201511
  6. MEDROL [Concomitant]
     Active Substance: METHYLPREDNISOLONE
     Indication: HEADACHE
     Dosage: 16 MG, DAILY
     Route: 048
     Dates: start: 201509, end: 201511

REACTIONS (1)
  - Malaise [Recovered/Resolved]

NARRATIVE: CASE EVENT DATE: 20151106
